FAERS Safety Report 4570271-X (Version None)
Quarter: 2005Q1

REPORT INFORMATION
  Report Type: 
  Country: None (occurrence: None)
  Receive Date: 20050127
  Receipt Date: 20050127
  Transmission Date: 20050727
  Serious: Yes (Hospitalization)
  Sender: FDA-Public Use
  Company Number: None

PATIENT
  Age: 66 Year
  Sex: Male
  Weight: 76.3 kg

DRUGS (6)
  1. CISPLATIN [Suspect]
  2. SIMVASTATIN [Concomitant]
  3. LISINOPRIL [Concomitant]
  4. MAGNESIUM GLUCONATE [Concomitant]
  5. DOCUSATE [Concomitant]
  6. TEMAZEPAM [Concomitant]

REACTIONS (1)
  - BLOOD CREATININE INCREASED [None]
